FAERS Safety Report 12788934 (Version 1)
Quarter: 2016Q3

REPORT INFORMATION
  Report Type: Spontaneous
  Country: US (occurrence: US)
  Receive Date: 20160928
  Receipt Date: 20160928
  Transmission Date: 20161109
  Serious: No
  Sender: FDA-Public Use
  Company Number: None

PATIENT
  Age: 55 Year
  Sex: Female
  Weight: 74.25 kg

DRUGS (4)
  1. VITAMIN D [Concomitant]
     Active Substance: CHOLECALCIFEROL
  2. PHENDIMETRAZINE [Suspect]
     Active Substance: PHENDIMETRAZINE
     Indication: WEIGHT DECREASED
     Route: 048
     Dates: start: 20160921, end: 20160923
  3. SYNTHROID [Concomitant]
     Active Substance: LEVOTHYROXINE SODIUM
  4. MULTIVITAMIN [Concomitant]
     Active Substance: VITAMINS

REACTIONS (4)
  - Paranoia [None]
  - Anxiety [None]
  - Hallucination, auditory [None]
  - Hallucination, visual [None]

NARRATIVE: CASE EVENT DATE: 20160922
